FAERS Safety Report 5835788-6 (Version None)
Quarter: 2008Q3

REPORT INFORMATION
  Report Type: 
  Country: None (occurrence: None)
  Receive Date: 20080729
  Receipt Date: 20080707
  Transmission Date: 20090109
  Serious: Yes (Other)
  Sender: FDA-Public Use
  Company Number: WWISSUE-198

PATIENT
  Age: 61 Hour
  Sex: Female

DRUGS (5)
  1. PHENOBARBITAL [Suspect]
  2. ANTACID TAB [Concomitant]
  3. (LEVSON) THYROID MEDICATION [Concomitant]
  4. CENTRAID, ELEVIL [Concomitant]
  5. CHOLESTEROL [Concomitant]

REACTIONS (1)
  - DRUG INEFFECTIVE [None]
